FAERS Safety Report 5874217-3 (Version None)
Quarter: 2008Q3

REPORT INFORMATION
  Report Type: 
  Country: None (occurrence: None)
  Receive Date: 20080908
  Receipt Date: 20080903
  Transmission Date: 20090109
  Serious: Yes (Death)
  Sender: FDA-Public Use
  Company Number: US-CELGENEUS-163-21880-08080533

PATIENT
  Sex: Female

DRUGS (3)
  1. REVLIMID [Suspect]
     Indication: MULTIPLE MYELOMA
     Route: 048
     Dates: start: 20071109, end: 20080701
  2. REVLIMID [Suspect]
     Route: 048
     Dates: start: 20061212, end: 20071001
  3. REVLIMID [Suspect]
     Route: 048
     Dates: start: 20061112, end: 20061201

REACTIONS (1)
  - MULTIPLE MYELOMA [None]
